FAERS Safety Report 11881202 (Version 1)
Quarter: 2015Q4

REPORT INFORMATION
  Report Type: Report from Study
  Country: NL (occurrence: NL)
  Receive Date: 20151231
  Receipt Date: 20151231
  Transmission Date: 20160305
  Serious: Yes (Hospitalization, Other)
  Sender: FDA-Public Use
  Company Number: NL-AMGEN-NLDSL2014088869

PATIENT
  Age: 91 Year
  Sex: Male

DRUGS (2)
  1. XGEVA [Suspect]
     Active Substance: DENOSUMAB
     Indication: PRODUCT USED FOR UNKNOWN INDICATION
     Dosage: 1.7 ML (70MG/ML), Q4WK
     Route: 058
     Dates: start: 20140604
  2. ARANESP [Suspect]
     Active Substance: DARBEPOETIN ALFA
     Indication: PRODUCT USED FOR UNKNOWN INDICATION
     Dosage: 0.6 ML (500MCG/ML, 300MCG), Q3WK
     Route: 058
     Dates: start: 20131128, end: 20140220

REACTIONS (7)
  - Bone pain [Unknown]
  - Hypersensitivity [Unknown]
  - Transfusion [Unknown]
  - Haemoglobin decreased [Unknown]
  - Ill-defined disorder [Unknown]
  - Skin discolouration [Unknown]
  - Hospitalisation [Unknown]
